FAERS Safety Report 23046644 (Version 1)
Quarter: 2023Q4

REPORT INFORMATION
  Report Type: Spontaneous
  Country: US (occurrence: None)
  Receive Date: 20231009
  Receipt Date: 20231009
  Transmission Date: 20240109
  Serious: Yes (Hospitalization, Other)
  Sender: FDA-Public Use
  Company Number: US-ROCHE-3433150

PATIENT
  Age: 63 Year
  Sex: Female
  Weight: 115.64 kg

DRUGS (3)
  1. TUKYSA [Suspect]
     Active Substance: TUCATINIB
     Indication: Breast cancer metastatic
     Route: 065
  2. HERCEPTIN [Suspect]
     Active Substance: TRASTUZUMAB
     Indication: Product used for unknown indication
     Route: 065
  3. XELODA [Suspect]
     Active Substance: CAPECITABINE
     Indication: Product used for unknown indication
     Route: 048

REACTIONS (31)
  - Diverticulitis [Unknown]
  - Hypotension [Unknown]
  - Haematochezia [Unknown]
  - Metastases to central nervous system [Unknown]
  - Neuropathy peripheral [Unknown]
  - Abdominal distension [Unknown]
  - Blood creatine increased [Unknown]
  - Reflux laryngitis [Unknown]
  - Renal disorder [Unknown]
  - Pruritus [Unknown]
  - Dehydration [Unknown]
  - Abdominal pain upper [Unknown]
  - Abdominal pain [Unknown]
  - Constipation [Unknown]
  - Myalgia [Unknown]
  - Erythema [Unknown]
  - Skin exfoliation [Unknown]
  - Stomatitis [Unknown]
  - Cancer pain [Unknown]
  - Magnetic resonance imaging head abnormal [Unknown]
  - Haemorrhage [Unknown]
  - Fungal skin infection [Unknown]
  - Blood chloride increased [Unknown]
  - Glomerular filtration rate decreased [Unknown]
  - Blood glucose increased [Unknown]
  - Blood alkaline phosphatase decreased [Unknown]
  - Red blood cell count decreased [Unknown]
  - Mean cell volume increased [Unknown]
  - Mean cell haemoglobin increased [Unknown]
  - Red cell distribution width increased [Unknown]
  - Asthenia [Unknown]

NARRATIVE: CASE EVENT DATE: 20230823
